FAERS Safety Report 6782137-5 (Version None)
Quarter: 2010Q2

REPORT INFORMATION
  Report Type: 
  Country: None (occurrence: None)
  Receive Date: 20100621
  Receipt Date: 20100615
  Transmission Date: 20101027
  Serious: Yes (Life-Threatening, Hospitalization, Disabling, Other)
  Sender: FDA-Public Use
  Company Number: US-MERCK-1006USA02459

PATIENT
  Age: 46 Year
  Sex: Female

DRUGS (15)
  1. EMEND [Suspect]
     Indication: PROPHYLAXIS OF NAUSEA AND VOMITING
     Route: 048
  2. TAXOTERE [Suspect]
     Route: 065
     Dates: end: 20100503
  3. CYCLOPHOSPHAMIDE [Concomitant]
     Route: 065
  4. NEULASTA [Concomitant]
     Route: 065
  5. MESNA [Concomitant]
     Route: 065
  6. ATIVAN [Concomitant]
     Route: 065
  7. COMPAZINE [Concomitant]
     Route: 065
  8. SINGULAIR [Concomitant]
     Route: 048
  9. PRILOSEC [Concomitant]
     Route: 065
  10. LOPID [Concomitant]
     Route: 065
  11. ADVAIR DISKUS 100/50 [Concomitant]
     Route: 065
  12. LEXAPRO [Concomitant]
     Route: 065
  13. PHENAZOPYRIDINE HCL TAB [Concomitant]
     Route: 065
  14. XANAX [Concomitant]
     Route: 065
  15. PERCOCET [Concomitant]
     Route: 065

REACTIONS (4)
  - ADVERSE EVENT [None]
  - ANGIOEDEMA [None]
  - PRURITUS GENERALISED [None]
  - URTICARIA [None]
